FAERS Safety Report 7652884-1 (Version None)
Quarter: 2011Q3

REPORT INFORMATION
  Report Type: 
  Country: None (occurrence: None)
  Receive Date: 20110722
  Receipt Date: 20110324
  Transmission Date: 20111222
  Serious: Yes (Hospitalization)
  Sender: FDA-Public Use
  Company Number: 2011AL000015

PATIENT
  Sex: Female

DRUGS (1)
  1. FOLOTYN [Suspect]
     Indication: ANGIOIMMUNOBLASTIC T-CELL LYMPHOMA
     Dates: start: 20101014, end: 20110316

REACTIONS (3)
  - FEBRILE NEUTROPENIA [None]
  - SEPSIS [None]
  - MUCOSAL INFLAMMATION [None]
